FAERS Safety Report 6105936-1 (Version None)
Quarter: 2009Q1

REPORT INFORMATION
  Report Type: 
  Country: None (occurrence: None)
  Receive Date: 20090306
  Receipt Date: 20080414
  Transmission Date: 20090719
  Serious: Yes (Hospitalization)
  Sender: FDA-Public Use
  Company Number: US-BRISTOL-MYERS SQUIBB COMPANY-14090575

PATIENT
  Age: 64 Year
  Sex: Female

DRUGS (4)
  1. TAXOL [Suspect]
     Indication: OVARIAN CANCER RECURRENT
     Dosage: DOSE TAKEN ON 7JAN,14JAN,24JAN,4FEB AND 19FEB08.
     Route: 042
     Dates: start: 20080107, end: 20080219
  2. DECADRON [Concomitant]
     Indication: PREMEDICATION
  3. TAGAMET [Concomitant]
     Indication: PREMEDICATION
  4. BENADRYL [Concomitant]
     Indication: PREMEDICATION

REACTIONS (2)
  - CHILLS [None]
  - PYREXIA [None]
